FAERS Safety Report 9183856 (Version 1)
Quarter: 2012Q4

REPORT INFORMATION
  Report Type: 
  Country: FR (occurrence: FR)
  Receive Date: 20121101
  Receipt Date: 20121101
  Transmission Date: 20130627
  Serious: Yes (Hospitalization)
  Sender: FDA-Public Use
  Company Number: FR-PFIZER INC-2012267523

PATIENT
  Age: 55 Year
  Sex: Female

DRUGS (9)
  1. EFFEXOR [Suspect]
     Dosage: 37.5 mg daily
     Route: 048
  2. MEDROL [Suspect]
     Dosage: 100 mg, 1x/day
     Route: 048
  3. DOXYCYCLINE MONOHYDRATE [Suspect]
     Dosage: 100 mg daily
     Route: 048
     Dates: end: 20120920
  4. KEPPRA [Suspect]
     Dosage: 250 mg, 2x/day
     Route: 048
  5. KEPPRA [Suspect]
     Dosage: 500 mg, 2x/day
     Route: 048
  6. KEPPRA [Suspect]
     Dosage: 750 mg, 2x/day
     Route: 048
     Dates: start: 20120924
  7. IRESSA [Suspect]
     Dosage: 250 mg daily
     Route: 048
     Dates: start: 201103, end: 20120920
  8. TOPALGIC [Concomitant]
     Dosage: UNK, as needed
  9. PRIMPERAN [Concomitant]
     Dosage: UNK, as needed

REACTIONS (1)
  - Encephalopathy [Recovered/Resolved]
